FAERS Safety Report 15946840 (Version 1)
Quarter: 2019Q1

REPORT INFORMATION
  Report Type: Spontaneous
  Country: US (occurrence: US)
  Receive Date: 20190212
  Receipt Date: 20190212
  Transmission Date: 20190417
  Serious: Yes (Other)
  Sender: FDA-Public Use
  Company Number: US-ABBVIE-19K-163-2657614-00

PATIENT
  Sex: Male

DRUGS (2)
  1. HUMIRA [Suspect]
     Active Substance: ADALIMUMAB
     Indication: PSORIASIS
     Route: 058
     Dates: start: 1999, end: 2016
  2. COSENTYX [Suspect]
     Active Substance: SECUKINUMAB
     Indication: PSORIASIS
     Route: 065
     Dates: start: 2016

REACTIONS (8)
  - Fall [Not Recovered/Not Resolved]
  - Pain [Unknown]
  - Rotator cuff repair [Unknown]
  - Chronic inflammatory demyelinating polyradiculoneuropathy [Not Recovered/Not Resolved]
  - Nerve injury [Not Recovered/Not Resolved]
  - Musculoskeletal disorder [Unknown]
  - Back disorder [Unknown]
  - Paresis [Not Recovered/Not Resolved]

NARRATIVE: CASE EVENT DATE: 2016
